FAERS Safety Report 10205091 (Version 1)
Quarter: 2014Q2

REPORT INFORMATION
  Report Type: Spontaneous
  Country: US (occurrence: US)
  Receive Date: 20140529
  Receipt Date: 20140529
  Transmission Date: 20141212
  Serious: No
  Sender: FDA-Public Use
  Company Number: US-009507513-1405USA011543

PATIENT
  Sex: Female

DRUGS (2)
  1. MIRALAX [Suspect]
     Indication: PRODUCT USED FOR UNKNOWN INDICATION
     Dosage: UNK, UNKNOWN
     Route: 048
     Dates: start: 20140513
  2. MIRALAX [Suspect]
     Dosage: UNK
     Route: 048
     Dates: start: 20140513

REACTIONS (4)
  - Throat tightness [Unknown]
  - Nervousness [Unknown]
  - Adverse reaction [Unknown]
  - Expired product administered [Unknown]
